FAERS Safety Report 8181667-1 (Version None)
Quarter: 2012Q1

REPORT INFORMATION
  Report Type: 
  Country: None (occurrence: None)
  Receive Date: 20120302
  Receipt Date: 20110801
  Transmission Date: 20120608
  Serious: Yes (Other)
  Sender: FDA-Public Use
  Company Number: US-AMGEN-USASP2011039107

PATIENT
  Sex: Female

DRUGS (1)
  1. NPLATE [Suspect]
     Indication: IDIOPATHIC THROMBOCYTOPENIC PURPURA
     Dosage: 6 MUG/KG, UNK
     Dates: start: 20110303, end: 20110408

REACTIONS (2)
  - TREATMENT NONCOMPLIANCE [None]
  - DRUG INEFFECTIVE [None]
